FAERS Safety Report 5271534-5 (Version None)
Quarter: 2007Q1

REPORT INFORMATION
  Report Type: 
  Country: None (occurrence: None)
  Receive Date: 20070316
  Receipt Date: 20070307
  Transmission Date: 20070707
  Serious: Yes (Death, Hospitalization)
  Sender: FDA-Public Use
  Company Number: 237821

PATIENT
  Age: 68 Year
  Sex: Female
  Weight: 66 kg

DRUGS (2)
  1. AVASTIN [Suspect]
     Indication: SMALL CELL LUNG CANCER STAGE UNSPECIFIED
     Dosage: 670 MG, DAYS 1+15, INTRAVENOUS
     Route: 042
     Dates: start: 20070115
  2. PACLITAXEL [Suspect]
     Indication: SMALL CELL LUNG CANCER STAGE UNSPECIFIED
     Dosage: 113 MG, DAYS 1, 8, 15, INTRAVENOUS
     Route: 042
     Dates: start: 20070115

REACTIONS (4)
  - CONSTIPATION [None]
  - ELECTROLYTE IMBALANCE [None]
  - PULMONARY EMBOLISM [None]
  - SUDDEN DEATH [None]
